FAERS Safety Report 24066423 (Version 6)
Quarter: 2025Q3

REPORT INFORMATION
  Report Type: Spontaneous
  Country: CO (occurrence: CO)
  Receive Date: 20240709
  Receipt Date: 20250714
  Transmission Date: 20251020
  Serious: Yes (Other)
  Sender: PFIZER
  Company Number: CO-PFIZER INC-PV202400020806

PATIENT
  Age: 85 Year
  Sex: Female

DRUGS (5)
  1. VYNDAMAX [Suspect]
     Active Substance: TAFAMIDIS
     Indication: Amyloidosis
     Dosage: 61 MG, DAILY
     Dates: end: 20241108
  2. VYNDAMAX [Suspect]
     Active Substance: TAFAMIDIS
     Dosage: 61 MG, DAILY
     Route: 048
     Dates: start: 20240203, end: 20241109
  3. SPIRONOLACTONE [Concomitant]
     Active Substance: SPIRONOLACTONE
     Dates: start: 202311
  4. EMPAGLIFLOZIN [Concomitant]
     Active Substance: EMPAGLIFLOZIN
     Dates: start: 202311
  5. METOPROLOL [Concomitant]
     Active Substance: METOPROLOL
     Dates: start: 202311

REACTIONS (17)
  - Kidney infection [Recovering/Resolving]
  - Bronchitis [Recovering/Resolving]
  - Cardiac failure [Unknown]
  - Somnolence [Unknown]
  - Condition aggravated [Unknown]
  - Pain in extremity [Unknown]
  - Muscle spasms [Unknown]
  - Influenza [Unknown]
  - Auditory disorder [Unknown]
  - Dizziness [Unknown]
  - Oropharyngeal pain [Unknown]
  - Pyrexia [Unknown]
  - Cough [Unknown]
  - Peripheral swelling [Unknown]
  - Blood pressure increased [Unknown]
  - Influenza like illness [Unknown]
  - Intentional product misuse [Unknown]

NARRATIVE: CASE EVENT DATE: 20240203
